FAERS Safety Report 13160560 (Version 3)
Quarter: 2017Q1

REPORT INFORMATION
  Report Type: Report from Study
  Country: GB (occurrence: GB)
  Receive Date: 20170129
  Receipt Date: 20170220
  Transmission Date: 20170428
  Serious: No
  Sender: FDA-Public Use
  Company Number: GB-ALEXION PHARMACEUTICALS INC.-A201700659

PATIENT
  Age: 3 Year
  Sex: Female

DRUGS (2)
  1. ABIDEC [Concomitant]
     Indication: SUPPLEMENTATION THERAPY
     Route: 065
  2. ENB-0040 [Suspect]
     Active Substance: ASFOTASE ALFA
     Indication: HYPOPHOSPHATASIA
     Dosage: 40 MG, TIW
     Route: 058
     Dates: start: 20120913

REACTIONS (3)
  - Vitamin B6 decreased [Unknown]
  - Blood alkaline phosphatase increased [Unknown]
  - Blood parathyroid hormone decreased [Unknown]

NARRATIVE: CASE EVENT DATE: 20160808
